FAERS Safety Report 4697447-5 (Version None)
Quarter: 2005Q2

REPORT INFORMATION
  Report Type: 
  Country: None (occurrence: None)
  Receive Date: 20050621
  Receipt Date: 20050606
  Transmission Date: 20051028
  Serious: Yes (Other)
  Sender: FDA-Public Use
  Company Number: USA050495038

PATIENT
  Sex: Male

DRUGS (1)
  1. FORTEO [Suspect]
     Indication: OSTEOPOROSIS
     Dosage: 20 UG
     Dates: start: 20040301, end: 20041021

REACTIONS (5)
  - FLIGHT OF IDEAS [None]
  - HYPOMANIA [None]
  - JUDGEMENT IMPAIRED [None]
  - MANIA [None]
  - PRESSURE OF SPEECH [None]
